FAERS Safety Report 13980279 (Version 2)
Quarter: 2017Q4

REPORT INFORMATION
  Report Type: Report from Study
  Country: CH (occurrence: CH)
  Receive Date: 20170917
  Receipt Date: 20171002
  Transmission Date: 20180321
  Serious: Yes (Hospitalization, Other)
  Sender: FDA-Public Use
  Company Number: CH-BEH-2017083640

PATIENT
  Age: 54 Year
  Sex: Female

DRUGS (5)
  1. ELTHROCIN [Concomitant]
     Route: 065
  2. EFFORTIL [Concomitant]
     Active Substance: ETILEFRINE HYDROCHLORIDE
     Route: 065
  3. HIZENTRA [Suspect]
     Active Substance: HUMAN IMMUNOGLOBULIN G
     Indication: IMMUNODEFICIENCY
     Dosage: 25 ML, QW
     Route: 058
     Dates: start: 20130426
  4. METFIN [Concomitant]
     Active Substance: METFORMIN HYDROCHLORIDE
     Route: 065
  5. ALDACTONE [Concomitant]
     Active Substance: SPIRONOLACTONE
     Route: 065

REACTIONS (22)
  - Headache [Recovering/Resolving]
  - Injection site haematoma [Unknown]
  - Arrhythmia [Unknown]
  - Fatigue [Unknown]
  - Headache [Unknown]
  - Headache [Unknown]
  - Infusion site swelling [Recovered/Resolved]
  - Cardiac disorder [Unknown]
  - Capillary fragility [Unknown]
  - Injection site pain [Recovered/Resolved]
  - Injection site swelling [Recovered/Resolved]
  - Infusion site induration [Unknown]
  - Injection site swelling [Recovered/Resolved]
  - Migraine [Recovering/Resolving]
  - Headache [Unknown]
  - Infusion site calcification [Unknown]
  - Fatigue [Recovering/Resolving]
  - Fatigue [Unknown]
  - Sjogren^s syndrome [Unknown]
  - Migraine [Unknown]
  - Fatigue [Unknown]
  - Injection site pain [Unknown]

NARRATIVE: CASE EVENT DATE: 2013
